FAERS Safety Report 8227534-6 (Version None)
Quarter: 2012Q1

REPORT INFORMATION
  Report Type: 
  Country: None (occurrence: None)
  Receive Date: 20120322
  Receipt Date: 20120315
  Transmission Date: 20120608
  Serious: Yes (Hospitalization)
  Sender: FDA-Public Use
  Company Number: DK-ASTELLAS-2012US002836

PATIENT
  Sex: Female

DRUGS (1)
  1. ERLOTINIB HYDROCHLORIDE [Suspect]
     Indication: NON-SMALL CELL LUNG CANCER
     Dosage: 150 MG, UNKNOWN/D
     Route: 048
     Dates: start: 20120214, end: 20120306

REACTIONS (7)
  - DEHYDRATION [None]
  - DIZZINESS [None]
  - DIARRHOEA [None]
  - WEIGHT DECREASED [None]
  - DRUG ERUPTION [None]
  - ORAL FUNGAL INFECTION [None]
  - APPETITE DISORDER [None]
